FAERS Safety Report 6803263-8 (Version None)
Quarter: 2010Q2

REPORT INFORMATION
  Report Type: 
  Country: None (occurrence: None)
  Receive Date: 20100628
  Receipt Date: 20100315
  Transmission Date: 20101027
  Serious: No
  Sender: FDA-Public Use
  Company Number: US-ASTRAZENECA-2010SE11306

PATIENT
  Age: 67 Year
  Sex: Male
  Weight: 92.1 kg

DRUGS (7)
  1. ZOLADEX [Suspect]
     Route: 058
     Dates: start: 20100101
  2. VITAMIN D [Concomitant]
  3. FISH OIL [Concomitant]
  4. CALCIUM CARBONATE [Concomitant]
  5. MULTI-VITAMIN [Concomitant]
  6. OSTEO BI-FLEX [Concomitant]
  7. ASPIRIN [Concomitant]

REACTIONS (4)
  - DISTURBANCE IN ATTENTION [None]
  - INCREASED APPETITE [None]
  - LIBIDO DECREASED [None]
  - PATIENT-DEVICE INCOMPATIBILITY [None]
